FAERS Safety Report 6007743-7 (Version None)
Quarter: 2008Q4

REPORT INFORMATION
  Report Type: 
  Country: None (occurrence: None)
  Receive Date: 20081217
  Receipt Date: 20080527
  Transmission Date: 20090506
  Serious: No
  Sender: FDA-Public Use
  Company Number: US-ASTRAZENECA-2008UW10730

PATIENT
  Age: 70 Year
  Sex: Female
  Weight: 56.7 kg

DRUGS (5)
  1. CRESTOR [Suspect]
     Indication: BLOOD CHOLESTEROL INCREASED
     Route: 048
     Dates: start: 20080515, end: 20080522
  2. PULMICORT [Concomitant]
     Indication: ASTHMA
     Route: 045
  3. MAXAIR [Concomitant]
  4. SYNTHROID [Concomitant]
  5. CELEXA [Concomitant]

REACTIONS (1)
  - DYSPEPSIA [None]
